FAERS Safety Report 8153338-9 (Version None)
Quarter: 2012Q1

REPORT INFORMATION
  Report Type: 
  Country: None (occurrence: None)
  Receive Date: 20120221
  Receipt Date: 20120207
  Transmission Date: 20120608
  Serious: Yes (Hospitalization)
  Sender: FDA-Public Use
  Company Number: US-ROCHE-1039115

PATIENT
  Sex: Male

DRUGS (3)
  1. NEURONTIN [Concomitant]
  2. MYCOPHENOLATE MOFETIL (CELLCEPT) [Suspect]
     Indication: LIVER TRANSPLANT
     Route: 042
  3. PREDNISONE [Concomitant]

REACTIONS (9)
  - PATELLA FRACTURE [None]
  - FEMUR FRACTURE [None]
  - RASH [None]
  - PRURITUS [None]
  - FALL [None]
  - BONE DISORDER [None]
  - HAEMATOMA [None]
  - TIBIA FRACTURE [None]
  - INFLAMMATORY MARKER INCREASED [None]
